FAERS Safety Report 16139011 (Version 2)
Quarter: 2019Q2

REPORT INFORMATION
  Report Type: Spontaneous
  Country: NL (occurrence: NL)
  Receive Date: 20190401
  Receipt Date: 20190517
  Transmission Date: 20190711
  Serious: Yes (Life-Threatening, Hospitalization, Other)
  Sender: FDA-Public Use
  Company Number: NL-009507513-1903NLD011131

PATIENT
  Age: 77 Year
  Sex: Female
  Weight: 73 kg

DRUGS (8)
  1. NORVASC [Concomitant]
     Active Substance: AMLODIPINE BESYLATE
     Dosage: 1 TABLET, EVERY OTHER DAY
     Route: 048
  2. COZAAR [Suspect]
     Active Substance: LOSARTAN POTASSIUM
     Indication: HYPERTENSION
     Dosage: 1 TABLET A DAY
     Route: 048
  3. METOPROLOL TARTRATE. [Concomitant]
     Active Substance: METOPROLOL TARTRATE
     Dosage: 1 TABLET, QD
     Route: 048
  4. ATORVASTATIN CALCIUM. [Concomitant]
     Active Substance: ATORVASTATIN CALCIUM
     Dosage: 1 TABLET, QD (10 MT)
     Route: 048
  5. TACALCITOL [Concomitant]
     Active Substance: TACALCITOL
     Dosage: 1 TABLET, QD (500 MG/800 IU)
     Route: 048
  6. DURATEARS (LANOLIN (+) MINERAL OIL (+) PETROLATUM, WHITE) [Concomitant]
     Dosage: 1 DROP EACH EYE IF NEEDED
     Route: 047
  7. ASPIRIN. [Concomitant]
     Active Substance: ASPIRIN
     Dosage: 1 TABLET, QD
     Route: 048
  8. PANTOPRAZOLE [Concomitant]
     Active Substance: PANTOPRAZOLE
     Dosage: 1 TABLET, QD
     Route: 048

REACTIONS (17)
  - Dehydration [Unknown]
  - Cardiac failure [Unknown]
  - Renal failure [Recovering/Resolving]
  - Respiratory tract inflammation [Unknown]
  - Palpitations [Unknown]
  - Gastroenteritis viral [Recovering/Resolving]
  - Constipation [Not Recovered/Not Resolved]
  - Asthenia [Unknown]
  - Hypotension [Unknown]
  - Heart valve operation [Unknown]
  - Starvation [Unknown]
  - Dry skin [Unknown]
  - Insomnia [Unknown]
  - Fatigue [Not Recovered/Not Resolved]
  - Peripheral swelling [Unknown]
  - Lower limb fracture [Unknown]
  - Hypersensitivity [Unknown]

NARRATIVE: CASE EVENT DATE: 2016
